FAERS Safety Report 15297829 (Version 3)
Quarter: 2025Q1

REPORT INFORMATION
  Report Type: Spontaneous
  Country: BE (occurrence: BE)
  Receive Date: 20180820
  Receipt Date: 20250130
  Transmission Date: 20250409
  Serious: Yes (Other)
  Sender: PFIZER
  Company Number: BE-PFIZER INC-2018328542

PATIENT

DRUGS (1)
  1. PROSTIN E2 [Suspect]
     Active Substance: DINOPROSTONE
     Indication: Labour induction
     Route: 064
     Dates: start: 20180809, end: 20180809

REACTIONS (2)
  - Foetal exposure during delivery [Unknown]
  - Bradycardia foetal [Recovered/Resolved]

NARRATIVE: CASE EVENT DATE: 20180809
